FAERS Safety Report 11227629 (Version 1)
Quarter: 2015Q2

REPORT INFORMATION
  Report Type: Spontaneous
  Country: US (occurrence: None)
  Receive Date: 20150626
  Receipt Date: 20150626
  Transmission Date: 20150821
  Serious: Yes (Life-Threatening, Disabling)
  Sender: FDA-Public Use
  Company Number: None

PATIENT
  Age: 64 Year
  Sex: Male
  Weight: 62.6 kg

DRUGS (11)
  1. VITAMIN D [Concomitant]
     Active Substance: CHOLECALCIFEROL
  2. BUPROPION XL [Suspect]
     Active Substance: BUPROPION
     Indication: DEPRESSED MOOD
     Route: 048
     Dates: start: 20150612, end: 20150613
  3. TESTOSTERONE CYPIONATE. [Concomitant]
     Active Substance: TESTOSTERONE CYPIONATE
  4. WELLBUTRIN XL [Concomitant]
     Active Substance: BUPROPION HYDROCHLORIDE
  5. ALBUTEROL. [Concomitant]
     Active Substance: ALBUTEROL
  6. ADDERAL XL [Concomitant]
  7. T4 [Concomitant]
     Active Substance: LEVOTHYROXINE
  8. NUVIGIL [Concomitant]
     Active Substance: ARMODAFINIL
  9. VITAMIN B12 [Concomitant]
     Active Substance: CYANOCOBALAMIN
  10. BUPROPION XL [Suspect]
     Active Substance: BUPROPION
     Indication: POST-TRAUMATIC STRESS DISORDER
     Route: 048
     Dates: start: 20150612, end: 20150613
  11. T3 [Concomitant]
     Active Substance: LIOTHYRONINE SODIUM

REACTIONS (12)
  - Dyspnoea [None]
  - Drug effect incomplete [None]
  - Product quality issue [None]
  - Speech disorder [None]
  - Tremor [None]
  - Anxiety [None]
  - Oxygen saturation decreased [None]
  - Product substitution issue [None]
  - Product formulation issue [None]
  - Dysstasia [None]
  - Abasia [None]
  - Fear [None]

NARRATIVE: CASE EVENT DATE: 20150617
